FAERS Safety Report 24465271 (Version 1)
Quarter: 2024Q4

REPORT INFORMATION
  Report Type: Report from Study
  Country: US (occurrence: US)
  Receive Date: 20241018
  Receipt Date: 20241018
  Transmission Date: 20250115
  Serious: No
  Sender: ROCHE
  Company Number: US-ROCHE-3506221

PATIENT
  Age: 65 Year
  Sex: Female

DRUGS (24)
  1. XOLAIR [Suspect]
     Active Substance: OMALIZUMAB
     Indication: Idiopathic urticaria
     Route: 058
     Dates: start: 20231107
  2. XOLAIR [Suspect]
     Active Substance: OMALIZUMAB
     Indication: Urticaria
     Route: 058
     Dates: start: 20231220
  3. XOLAIR [Suspect]
     Active Substance: OMALIZUMAB
     Route: 058
     Dates: start: 20231128
  4. XOLAIR [Suspect]
     Active Substance: OMALIZUMAB
     Route: 058
     Dates: start: 20240206
  5. MONTELUKAST [Concomitant]
     Active Substance: MONTELUKAST
  6. HYDROXYZINE [Concomitant]
     Active Substance: HYDROXYZINE HYDROCHLORIDE
     Route: 048
     Dates: start: 20210312
  7. HYDROXYZINE [Concomitant]
     Active Substance: HYDROXYZINE HYDROCHLORIDE
     Route: 048
     Dates: start: 20240206
  8. ALBUTEROL [Concomitant]
     Active Substance: ALBUTEROL
  9. ASCORBIC ACID [Concomitant]
     Active Substance: ASCORBIC ACID
  10. ASPIRIN [Concomitant]
     Active Substance: ASPIRIN
  11. ATORVASTATIN [Concomitant]
     Active Substance: ATORVASTATIN
  12. CARVEDILOL [Concomitant]
     Active Substance: CARVEDILOL
  13. CYCLOBENZAPRINE [Concomitant]
     Active Substance: CYCLOBENZAPRINE
  14. DOXEPIN [Concomitant]
     Active Substance: DOXEPIN
  15. EPINEPHRINE [Concomitant]
     Active Substance: EPINEPHRINE
  16. FOLIC ACID [Concomitant]
     Active Substance: FOLIC ACID
  17. FUROSEMIDE [Concomitant]
     Active Substance: FUROSEMIDE
  18. GABAPENTIN [Concomitant]
     Active Substance: GABAPENTIN
  19. LEVOTHYROXINE [Concomitant]
     Active Substance: LEVOTHYROXINE
  20. LOSARTAN [Concomitant]
     Active Substance: LOSARTAN
  21. PAROXETINE [Concomitant]
     Active Substance: PAROXETINE
  22. RANITIDINE [Concomitant]
     Active Substance: RANITIDINE
  23. SEMAGLUTIDE [Concomitant]
     Active Substance: SEMAGLUTIDE
  24. THIAMINE [Concomitant]
     Active Substance: THIAMINE

REACTIONS (2)
  - Off label use [Unknown]
  - Scratch [Unknown]
